FAERS Safety Report 6165315-8 (Version None)
Quarter: 2009Q2

REPORT INFORMATION
  Report Type: 
  Country: None (occurrence: None)
  Receive Date: 20090421
  Receipt Date: 20090421
  Transmission Date: 20091009
  Serious: Yes (Hospitalization)
  Sender: FDA-Public Use
  Company Number: None

PATIENT
  Age: 27 Year
  Sex: Female

DRUGS (1)
  1. SULFAMETHOXAZOLE AND TRIMETHOPRIM [Suspect]
     Indication: PILONIDAL SINUS REPAIR
     Dosage: PO
     Route: 048
     Dates: start: 20081002, end: 20081007

REACTIONS (1)
  - STEVENS-JOHNSON SYNDROME [None]
